FAERS Safety Report 9996875 (Version 1)
Quarter: 2014Q1

REPORT INFORMATION
  Report Type: Spontaneous
  Country: US (occurrence: US)
  Receive Date: 20140311
  Receipt Date: 20140311
  Transmission Date: 20141002
  Serious: No
  Sender: FDA-Public Use
  Company Number: US-GLAXOSMITHKLINE-A1034991A

PATIENT
  Age: 68 Year
  Sex: Female

DRUGS (3)
  1. NICORETTE WHITE ICE OTC 4MG [Suspect]
     Indication: EX-TOBACCO USER
  2. BIOTENE DRY MOUTH ORAL RINSE [Suspect]
  3. BIOTENE MOISTURIZING MOUTH SPRAY [Suspect]

REACTIONS (1)
  - Dental caries [Not Recovered/Not Resolved]
